FAERS Safety Report 6065425-X (Version None)
Quarter: 2009Q1

REPORT INFORMATION
  Report Type: 
  Country: None (occurrence: None)
  Receive Date: 20090204
  Receipt Date: 20081208
  Transmission Date: 20090719
  Serious: Yes (Hospitalization, Other)
  Sender: FDA-Public Use
  Company Number: AU-PFIZER INC-2008088585

PATIENT
  Sex: Female
  Weight: 38 kg

DRUGS (3)
  1. CHAMPIX [Suspect]
     Indication: SMOKING CESSATION THERAPY
     Dosage: UNK
     Route: 048
     Dates: start: 20080901, end: 20080901
  2. PREDNISOLONE AND PREDNISOLONE STEAGLATE [Suspect]
     Dosage: UNK
     Route: 048
     Dates: start: 20080901, end: 20080901
  3. ANTIBIOTICS [Suspect]
     Route: 048

REACTIONS (7)
  - ASTHMA [None]
  - BRONCHITIS [None]
  - DYSPHAGIA [None]
  - MALAISE [None]
  - NAUSEA [None]
  - PRURITUS [None]
  - THROAT TIGHTNESS [None]
